FAERS Safety Report 7393577-8 (Version None)
Quarter: 2011Q2

REPORT INFORMATION
  Report Type: 
  Country: None (occurrence: None)
  Receive Date: 20110405
  Receipt Date: 20110331
  Transmission Date: 20111010
  Serious: No
  Sender: FDA-Public Use
  Company Number: US-PFIZER INC-2011072326

PATIENT
  Sex: Male
  Weight: 127 kg

DRUGS (2)
  1. THYROID TAB [Concomitant]
     Indication: HYPOTHYROIDISM
     Dosage: UNK
  2. EPLERENONE [Suspect]
     Indication: ADRENAL NEOPLASM
     Dosage: 50 MG, DAILY
     Route: 048
     Dates: start: 20090101, end: 20110301

REACTIONS (3)
  - BLOOD PRESSURE INCREASED [None]
  - MALAISE [None]
  - OEDEMA PERIPHERAL [None]
